FAERS Safety Report 9463594 (Version 1)
Quarter: 2013Q3

REPORT INFORMATION
  Report Type: Spontaneous
  Country: US (occurrence: US)
  Receive Date: 20130819
  Receipt Date: 20130819
  Transmission Date: 20140515
  Serious: Yes (Other)
  Sender: FDA-Public Use
  Company Number: US-RB-057185-13

PATIENT
  Age: 79 Year
  Sex: Female

DRUGS (1)
  1. MUCINEX DM [Suspect]
     Indication: RESPIRATORY TRACT CONGESTION
     Route: 048
     Dates: start: 20130807

REACTIONS (2)
  - Syncope [Unknown]
  - Dizziness [Not Recovered/Not Resolved]
